FAERS Safety Report 10222332 (Version 2)
Quarter: 2014Q2

REPORT INFORMATION
  Report Type: Report from Study
  Country: NL (occurrence: NL)
  Receive Date: 20140606
  Receipt Date: 20140606
  Transmission Date: 20141212
  Serious: Yes (Congenital Anomaly, Other)
  Sender: FDA-Public Use
  Company Number: NL-GILEAD-2005-0008716

PATIENT
  Sex: Female
  Weight: 2.56 kg

DRUGS (4)
  1. TENOFOVIR DISOPROXIL FUMARATE [Suspect]
     Indication: HIV INFECTION
     Dosage: 245 MG, QD
     Route: 064
     Dates: start: 20041207, end: 20050803
  2. COMBIVIR [Suspect]
     Indication: HIV INFECTION
     Dosage: 2 DF, UNK
     Route: 064
     Dates: start: 20041207, end: 20050221
  3. LOPINAVIR/RITONAVIR [Suspect]
     Indication: HIV INFECTION
     Dosage: 6 DF, UNK
     Route: 064
     Dates: start: 20041207, end: 20050803
  4. RETROVIR [Suspect]
     Indication: HIV INFECTION
     Dosage: 600 MG, QD
     Route: 064
     Dates: start: 20050222, end: 20050803

REACTIONS (3)
  - Congenital pyelocaliectasis [Unknown]
  - Maternal drugs affecting foetus [None]
  - Premature baby [None]
